FAERS Safety Report 4840164-9 (Version None)
Quarter: 2005Q4

REPORT INFORMATION
  Report Type: 
  Country: None (occurrence: None)
  Receive Date: 20051123
  Receipt Date: 20051110
  Transmission Date: 20060501
  Serious: Yes (Other)
  Sender: FDA-Public Use
  Company Number: US-2005-023809

PATIENT
  Age: 62 Year
  Sex: Male

DRUGS (3)
  1. BETASERON [Suspect]
     Indication: RELAPSING-REMITTING MULTIPLE SCLEROSIS
     Dosage: 8 MIU, EVERY 2D, SUBCUTANEOUS
     Route: 058
     Dates: start: 20050629, end: 20051103
  2. ANTIHYPERTENSIVES [Concomitant]
  3. ORAL ANTIDIABETICS [Concomitant]

REACTIONS (3)
  - FALL [None]
  - MALAISE [None]
  - PARALYSIS [None]
